FAERS Safety Report 6676235-4 (Version None)
Quarter: 2010Q2

REPORT INFORMATION
  Report Type: 
  Country: None (occurrence: None)
  Receive Date: 20100412
  Receipt Date: 20100331
  Transmission Date: 20101027
  Serious: Yes (Hospitalization)
  Sender: FDA-Public Use
  Company Number: JP-EISAI INC.-E3810-03526-SPO-JP

PATIENT
  Age: 68 Year
  Sex: Female
  Weight: 68.1 kg

DRUGS (5)
  1. PARIET (RABEPRAZOLE) [Suspect]
     Route: 048
     Dates: start: 20081023
  2. SOLETON [Suspect]
     Indication: SPINAL COLUMN STENOSIS
     Route: 048
     Dates: start: 20081001, end: 20081220
  3. ALMARL [Concomitant]
     Dosage: UNKNOWN
     Route: 048
  4. MEVALOTIN [Concomitant]
     Route: 048
  5. SOLANAX [Concomitant]
     Dosage: UNKNOWN
     Route: 048

REACTIONS (3)
  - DECREASED APPETITE [None]
  - NAUSEA [None]
  - RENAL IMPAIRMENT [None]
